FAERS Safety Report 15717242 (Version 2)
Quarter: 2018Q4

REPORT INFORMATION
  Report Type: Spontaneous
  Country: IT (occurrence: IT)
  Receive Date: 20181213
  Receipt Date: 20181217
  Transmission Date: 20190205
  Serious: Yes (Life-Threatening, Hospitalization)
  Sender: FDA-Public Use
  Company Number: IT-B.I. PHARMACEUTICALS,INC./RIDGEFIELD-2018-BI-059662

PATIENT
  Age: 82 Year
  Sex: Female
  Weight: 70 kg

DRUGS (1)
  1. PRADAXA [Suspect]
     Active Substance: DABIGATRAN ETEXILATE MESYLATE
     Indication: ATRIAL FIBRILLATION
     Route: 065

REACTIONS (3)
  - Head injury [Unknown]
  - Fall [Unknown]
  - Cerebral haemorrhage [Recovered/Resolved]
